FAERS Safety Report 12632106 (Version 2)
Quarter: 2016Q3

REPORT INFORMATION
  Report Type: Spontaneous
  Country: US (occurrence: US)
  Receive Date: 20160808
  Receipt Date: 20160808
  Transmission Date: 20161109
  Serious: No
  Sender: FDA-Public Use
  Company Number: US-BEH-2016061893

PATIENT
  Age: 67 Year
  Sex: Female
  Weight: 80 kg

DRUGS (27)
  1. ACETAMINOPHEN. [Concomitant]
     Active Substance: ACETAMINOPHEN
  2. EPIPEN [Concomitant]
     Active Substance: EPINEPHRINE
  3. PULMICORT TURBUHALER [Concomitant]
     Active Substance: BUDESONIDE
  4. ALBUTEROL. [Concomitant]
     Active Substance: ALBUTEROL
  5. ZYRTEC [Concomitant]
     Active Substance: CETIRIZINE HYDROCHLORIDE
  6. HIZENTRA [Suspect]
     Active Substance: HUMAN IMMUNOGLOBULIN G
     Route: 058
  7. HIZENTRA [Suspect]
     Active Substance: HUMAN IMMUNOGLOBULIN G
     Route: 058
  8. LOSARTAN. [Concomitant]
     Active Substance: LOSARTAN
  9. LISINOPRIL. [Concomitant]
     Active Substance: LISINOPRIL
  10. LIDOCAINE. [Concomitant]
     Active Substance: LIDOCAINE
  11. CEFTIN [Concomitant]
     Active Substance: CEFUROXIME AXETIL
  12. PHENERGAN [Concomitant]
     Active Substance: PROMETHAZINE HYDROCHLORIDE
  13. HIZENTRA [Suspect]
     Active Substance: HUMAN IMMUNOGLOBULIN G
     Route: 058
  14. LASIX [Concomitant]
     Active Substance: FUROSEMIDE
  15. PERFORMIST [Concomitant]
  16. SPIRIVA [Concomitant]
     Active Substance: TIOTROPIUM BROMIDE MONOHYDRATE
  17. OXYGEN. [Concomitant]
     Active Substance: OXYGEN
  18. HIZENTRA [Suspect]
     Active Substance: HUMAN IMMUNOGLOBULIN G
     Indication: IMMUNODEFICIENCY COMMON VARIABLE
     Route: 058
     Dates: start: 20100524
  19. DIPHENHYDRAMINE. [Concomitant]
     Active Substance: DIPHENHYDRAMINE
  20. GLUCOPHAGE [Concomitant]
     Active Substance: METFORMIN HYDROCHLORIDE
  21. HIZENTRA [Suspect]
     Active Substance: HUMAN IMMUNOGLOBULIN G
     Route: 058
  22. TAMIFLU [Concomitant]
     Active Substance: OSELTAMIVIR PHOSPHATE
  23. PLAVIX [Concomitant]
     Active Substance: CLOPIDOGREL BISULFATE
  24. GLIPIZIDE. [Concomitant]
     Active Substance: GLIPIZIDE
  25. AMOXICILLIN. [Concomitant]
     Active Substance: AMOXICILLIN
  26. LEVEMIR [Concomitant]
     Active Substance: INSULIN DETEMIR
  27. TRICOR [Concomitant]
     Active Substance: FENOFIBRATE

REACTIONS (1)
  - Nasopharyngitis [Unknown]

NARRATIVE: CASE EVENT DATE: 201602
